FAERS Safety Report 17608303 (Version 1)
Quarter: 2020Q1

REPORT INFORMATION
  Report Type: Report from Study
  Country: US (occurrence: US)
  Receive Date: 20200331
  Receipt Date: 20200331
  Transmission Date: 20200409
  Serious: Yes (Hospitalization, Other)
  Sender: FDA-Public Use
  Company Number: US-GILEAD-2020-0457361

PATIENT
  Age: 11 Year
  Sex: Female

DRUGS (13)
  1. PROAIR [FLUTICASONE PROPIONATE] [Concomitant]
     Active Substance: FLUTICASONE PROPIONATE
  2. ADVAIR HFA [Concomitant]
     Active Substance: FLUTICASONE PROPIONATE\SALMETEROL XINAFOATE
  3. ALBUTEROL [SALBUTAMOL] [Concomitant]
     Active Substance: ALBUTEROL
  4. REGLAN [Concomitant]
     Active Substance: METOCLOPRAMIDE HYDROCHLORIDE
  5. VITAMIN A PALMITATE [RETINOL] [Concomitant]
  6. ZENPEP [Concomitant]
     Active Substance: PANCRELIPASE AMYLASE\PANCRELIPASE LIPASE\PANCRELIPASE PROTEASE
  7. ZANTAC [Concomitant]
     Active Substance: RANITIDINE HYDROCHLORIDE
  8. RELIZORB [Concomitant]
  9. LANSOPRAZOLE. [Concomitant]
     Active Substance: LANSOPRAZOLE
  10. AZITHROMYCIN ANHYDROUS. [Concomitant]
     Active Substance: AZITHROMYCIN ANHYDROUS
  11. HYPERSAL [Concomitant]
     Active Substance: SODIUM CHLORIDE
  12. AZTREONAM LYSINE [Suspect]
     Active Substance: AZTREONAM LYSINE
     Indication: CYSTIC FIBROSIS
     Dosage: 75 MG, TID
     Route: 055
     Dates: start: 20180317
  13. PULMOZYME [Concomitant]
     Active Substance: DORNASE ALFA

REACTIONS (1)
  - Cystic fibrosis respiratory infection suppression [Unknown]

NARRATIVE: CASE EVENT DATE: 202003
